FAERS Safety Report 6430755-6 (Version None)
Quarter: 2009Q4

REPORT INFORMATION
  Report Type: 
  Country: None (occurrence: None)
  Receive Date: 20091105
  Receipt Date: 20091105
  Transmission Date: 20100525
  Serious: Yes (Other)
  Sender: FDA-Public Use
  Company Number: None

PATIENT
  Sex: Male
  Weight: 26.3086 kg

DRUGS (1)
  1. TAMIFLU [Suspect]
     Indication: INFLUENZA
     Dosage: 60MG BID PO
     Route: 048
     Dates: start: 20091026, end: 20091030

REACTIONS (2)
  - COUGH [None]
  - PSYCHOMOTOR HYPERACTIVITY [None]
